FAERS Safety Report 11894610 (Version 1)
Quarter: 2016Q1

REPORT INFORMATION
  Report Type: Spontaneous
  Country: US (occurrence: None)
  Receive Date: 20160106
  Receipt Date: 20160106
  Transmission Date: 20160526
  Serious: Yes (Other)
  Sender: FDA-Public Use
  Company Number: None

PATIENT

DRUGS (2)
  1. HRT ACTIVELLE [Concomitant]
  2. LYRICA [Suspect]
     Active Substance: PREGABALIN

REACTIONS (2)
  - Anxiety [None]
  - Dizziness [None]

NARRATIVE: CASE EVENT DATE: 20150916
